FAERS Safety Report 7085123-3 (Version None)
Quarter: 2010Q4

REPORT INFORMATION
  Report Type: 
  Country: None (occurrence: None)
  Receive Date: 20101027
  Receipt Date: 20101020
  Transmission Date: 20110411
  Serious: Yes (Hospitalization)
  Sender: FDA-Public Use
  Company Number: WAES 1008USA03084

PATIENT
  Age: 63 Year
  Sex: Male

DRUGS (10)
  1. ZETIA [Suspect]
     Indication: HYPERCHOLESTEROLAEMIA
     Dosage: 10 MG/DAILY PO
     Route: 048
     Dates: start: 20090213, end: 20090625
  2. ASPIRIN [Concomitant]
  3. ATORVASTATIN CALCIUM [Concomitant]
  4. CANDESARTAN CILEXETIL [Concomitant]
  5. GLIMEPIRIDE [Concomitant]
  6. NICORANDIL [Concomitant]
  7. PIOGLITAZONE HCL [Concomitant]
  8. RABEPRAZOLE SODIUM [Concomitant]
  9. TICLOPIDINE HYDROCHLORIDE [Concomitant]
  10. VOGLIBOSE [Concomitant]

REACTIONS (3)
  - ABDOMINAL ABSCESS [None]
  - CHOLECYSTITIS [None]
  - CHOLELITHIASIS [None]
